FAERS Safety Report 9603349 (Version 1)
Quarter: 2013Q4

REPORT INFORMATION
  Report Type: Spontaneous
  Country: GB (occurrence: GB)
  Receive Date: 20131007
  Receipt Date: 20131007
  Transmission Date: 20140711
  Serious: Yes (Other)
  Sender: FDA-Public Use
  Company Number: GB-TEVA-436053ISR

PATIENT
  Age: 49 Year
  Sex: Female
  Weight: 79 kg

DRUGS (1)
  1. CARBOPLATIN [Suspect]
     Indication: OVARIAN CANCER
     Dosage: PATIENTS LAST DOSE OF CARBOPLATIN, ONLY HAD 1/2.
     Route: 042
     Dates: start: 20130913, end: 20130913

REACTIONS (1)
  - Chest discomfort [Recovered/Resolved]
